FAERS Safety Report 9173415 (Version 1)
Quarter: 2013Q1

REPORT INFORMATION
  Report Type: Spontaneous
  Country: US (occurrence: US)
  Receive Date: 20130320
  Receipt Date: 20130320
  Transmission Date: 20140127
  Serious: No
  Sender: FDA-Public Use
  Company Number: US-BAYER-2013-034585

PATIENT
  Sex: Female

DRUGS (3)
  1. ALEVE [Suspect]
     Indication: BACK PAIN
     Dosage: 2 DF, BID
     Route: 048
     Dates: start: 201302
  2. BLOOD PRESSURE MEDICATION (NOS) [Concomitant]
  3. THYROID THERAPY [Concomitant]

REACTIONS (3)
  - Constipation [Recovered/Resolved]
  - Incorrect drug administration duration [None]
  - Overdose [None]
